FAERS Safety Report 4449236-4 (Version None)
Quarter: 2004Q3

REPORT INFORMATION
  Report Type: 
  Country: None (occurrence: None)
  Receive Date: 20040909
  Receipt Date: 20040820
  Transmission Date: 20050211
  Serious: Yes (Death, Hospitalization)
  Sender: FDA-Public Use
  Company Number: USA040876108

PATIENT
  Age: 78 Year
  Sex: Male
  Weight: 75 kg

DRUGS (4)
  1. ZYPREXA [Suspect]
     Indication: DEMENTIA
     Dosage: 2.5 MG DAY
     Dates: start: 20020409, end: 20020430
  2. METOPROLOL [Concomitant]
  3. COUMADIN [Concomitant]
  4. ARICEPT [Concomitant]

REACTIONS (3)
  - ABNORMAL BEHAVIOUR [None]
  - MALAISE [None]
  - NAUSEA [None]
